FAERS Safety Report 21344220 (Version 1)
Quarter: 2022Q3

REPORT INFORMATION
  Report Type: Spontaneous
  Country: US (occurrence: US)
  Receive Date: 20220916
  Receipt Date: 20220916
  Transmission Date: 20221026
  Serious: Yes (Other)
  Sender: FDA-Public Use
  Company Number: US-CATALYST PHARMACEUTICALS, INC-2022CAT00651

PATIENT
  Age: 68 Year
  Sex: Male

DRUGS (6)
  1. FIRDAPSE [Suspect]
     Active Substance: AMIFAMPRIDINE PHOSPHATE
     Indication: Myasthenic syndrome
     Dosage: 1 TABLET (10 MG), 4X/DAY
     Route: 048
     Dates: start: 20190320
  2. FLOMAX [Concomitant]
     Active Substance: TAMSULOSIN HYDROCHLORIDE
     Dosage: UNK, 1X/DAY AT BEDTIME
  3. FLORIGEN [Concomitant]
     Dosage: 3 DOSAGE UNITS, 1X/DAY
  4. MELATONIN [Concomitant]
     Active Substance: MELATONIN
     Dosage: UNK, 1X/DAY AT BEDTIME
  5. MESTINON [Concomitant]
     Active Substance: PYRIDOSTIGMINE BROMIDE
     Dosage: UNK, 4X/DAY
  6. PAXIL [Concomitant]
     Active Substance: PAROXETINE HYDROCHLORIDE
     Dosage: UNK, 1X/DAY

REACTIONS (3)
  - Rib fracture [Not Recovered/Not Resolved]
  - Fall [Recovered/Resolved]
  - Balance disorder [Not Recovered/Not Resolved]

NARRATIVE: CASE EVENT DATE: 20220904
